FAERS Safety Report 23580126 (Version 2)
Quarter: 2024Q2

REPORT INFORMATION
  Report Type: Spontaneous
  Country: PL (occurrence: PL)
  Receive Date: 20240229
  Receipt Date: 20240409
  Transmission Date: 20240715
  Serious: Yes (Hospitalization, Other)
  Sender: FDA-Public Use
  Company Number: PL-JNJFOC-20240218830

PATIENT
  Age: 43 Year
  Sex: Female
  Weight: 74 kg

DRUGS (14)
  1. SILDENAFIL [Suspect]
     Active Substance: SILDENAFIL
     Indication: Pulmonary arterial hypertension
     Dosage: 20 MILLIGRAM, 3X1 TABLET, DOSE BY AMP 5 MG/ML, FLOW 42 UL/H, DOSE 50 NG/KG/MIN
     Route: 065
     Dates: start: 202201
  2. SILDENAFIL [Suspect]
     Active Substance: SILDENAFIL
     Dosage: 20 MILLIGRAM, 3X1 TABLET, DOSE BY AMP 5MG/ML, FLOW 42 UL/H DOSE 50 NG/KG/MIN
     Route: 065
     Dates: start: 202205
  3. SILDENAFIL [Suspect]
     Active Substance: SILDENAFIL
     Dosage: 20 MILLIGRAM, TID (20 MG 3X1 TABLET)
     Route: 065
     Dates: start: 20230225
  4. SILDENAFIL [Suspect]
     Active Substance: SILDENAFIL
     Dosage: 20 MILLIGRAM
     Route: 065
     Dates: start: 202304
  5. OPSUMIT [Suspect]
     Active Substance: MACITENTAN
     Indication: Pulmonary arterial hypertension
     Dosage: 10 MILLIGRAM, QD (IN THE MORNING WITH A MEAL)
     Route: 048
     Dates: start: 20230225
  6. OPSUMIT [Suspect]
     Active Substance: MACITENTAN
     Dosage: 10 MILLIGRAM, QD
     Route: 048
     Dates: start: 202304
  7. UPTRAVI [Suspect]
     Active Substance: SELEXIPAG
     Indication: Pulmonary arterial hypertension
     Dosage: 200 MICROGRAM, BID
     Route: 048
     Dates: start: 2022
  8. UPTRAVI [Suspect]
     Active Substance: SELEXIPAG
     Dosage: 1600 MICROGRAM, BID
     Route: 048
     Dates: start: 20230225
  9. UPTRAVI [Suspect]
     Active Substance: SELEXIPAG
     Dosage: 1600 MICROGRAM, BID
     Route: 048
     Dates: start: 202304
  10. UPTRAVI [Suspect]
     Active Substance: SELEXIPAG
     Dosage: 1200 MICROGRAM, BID
     Route: 048
     Dates: start: 202312
  11. DEXAK SL [Concomitant]
     Dosage: UNK
     Route: 065
  12. BOSENTAN [Concomitant]
     Active Substance: BOSENTAN
     Dosage: 62.5 MILLIGRAM, BID (2 X 62.5 MG)
     Route: 048
     Dates: start: 202205
  13. Ketonal [Concomitant]
     Dosage: 50 MILLIGRAM
     Route: 065
     Dates: start: 202201
  14. ZOFRAN [Concomitant]
     Active Substance: ONDANSETRON HYDROCHLORIDE
     Dosage: 4 MILLIGRAM, TID (4 MG 3X1)
     Route: 065
     Dates: start: 202201

REACTIONS (10)
  - Pericardial effusion [Unknown]
  - Hospitalisation [Unknown]
  - Syncope [Recovering/Resolving]
  - Adjustment disorder [Unknown]
  - Nausea [Unknown]
  - Asthenia [Unknown]
  - Dizziness [Recovering/Resolving]
  - Palpitations [Recovering/Resolving]
  - Headache [Recovering/Resolving]
  - Abdominal pain [Recovering/Resolving]

NARRATIVE: CASE EVENT DATE: 20230701
